FAERS Safety Report 15653827 (Version 1)
Quarter: 2018Q4

REPORT INFORMATION
  Report Type: Spontaneous
  Country: US (occurrence: US)
  Receive Date: 20181123
  Receipt Date: 20181123
  Transmission Date: 20190205
  Serious: Yes (Other)
  Sender: FDA-Public Use
  Company Number: None

PATIENT
  Age: 58 Year
  Sex: Female
  Weight: 71.55 kg

DRUGS (13)
  1. DICYCLOMINE [Concomitant]
     Active Substance: DICYCLOMINE HYDROCHLORIDE
  2. MELATONIN [Concomitant]
     Active Substance: MELATONIN
  3. IBRANCE [Suspect]
     Active Substance: PALBOCICLIB
     Indication: BREAST CANCER
     Route: 048
     Dates: start: 20180907
  4. CARVEDILOL. [Concomitant]
     Active Substance: CARVEDILOL
  5. ADVIL [Concomitant]
     Active Substance: IBUPROFEN
  6. MAGNESIUM [Concomitant]
     Active Substance: MAGNESIUM
  7. POTASSIUM [Concomitant]
     Active Substance: POTASSIUM
  8. FUROSEMIDE. [Concomitant]
     Active Substance: FUROSEMIDE
  9. METFORMIN [Concomitant]
     Active Substance: METFORMIN HYDROCHLORIDE
  10. EFFEXOR XR [Concomitant]
     Active Substance: VENLAFAXINE HYDROCHLORIDE
  11. LETROZOLE. [Concomitant]
     Active Substance: LETROZOLE
  12. LISINOPRIL. [Concomitant]
     Active Substance: LISINOPRIL
  13. VITAMIN D [Concomitant]
     Active Substance: CHOLECALCIFEROL

REACTIONS (1)
  - Anxiety [None]
